FAERS Safety Report 6966805-8 (Version None)
Quarter: 2010Q3

REPORT INFORMATION
  Report Type: 
  Country: None (occurrence: None)
  Receive Date: 20100906
  Receipt Date: 20100823
  Transmission Date: 20110219
  Serious: Yes (Hospitalization, Other)
  Sender: FDA-Public Use
  Company Number: PHHY2010JP06417

PATIENT
  Age: 80 Year
  Sex: Female

DRUGS (7)
  1. GLEEVEC [Suspect]
     Indication: CHRONIC MYELOID LEUKAEMIA
     Dosage: 400 MG DAILY
     Route: 048
     Dates: start: 20011221
  2. GLEEVEC [Suspect]
     Dosage: 400 MG DAILY
     Route: 048
     Dates: start: 20091119
  3. GLEEVEC [Suspect]
     Dosage: 400 MG DAILY
     Route: 048
     Dates: start: 20090101, end: 20091110
  4. PARIET [Concomitant]
     Indication: REFLUX OESOPHAGITIS
     Dosage: 20 MG, UNK
     Dates: start: 20020220, end: 20090121
  5. HOCHUUEKKITOU [Concomitant]
     Indication: IMMUNE ENHANCEMENT THERAPY
     Dosage: UNK
     Route: 048
     Dates: start: 20080601, end: 20100121
  6. HACHIMIJIO-GAN [Concomitant]
     Indication: IMMUNE ENHANCEMENT THERAPY
     Dosage: 1 DF, UNK
     Route: 048
     Dates: start: 20080601, end: 20100121
  7. BAKUMONDOUTO [Concomitant]
     Indication: OROPHARYNGEAL DISCOMFORT
     Dosage: UNK
     Dates: start: 20080616, end: 20100121

REACTIONS (11)
  - ASCITES [None]
  - ASPIRATION [None]
  - BLOOD CREATINE PHOSPHOKINASE INCREASED [None]
  - CHOKING [None]
  - COUGH [None]
  - FEMORAL NECK FRACTURE [None]
  - MUSCULOSKELETAL PAIN [None]
  - OEDEMA [None]
  - PLEURAL EFFUSION [None]
  - URINE OUTPUT DECREASED [None]
  - WHEEZING [None]
